FAERS Safety Report 25203925 (Version 2)
Quarter: 2025Q2

REPORT INFORMATION
  Report Type: Spontaneous
  Country: US (occurrence: US)
  Receive Date: 20250416
  Receipt Date: 20250423
  Transmission Date: 20250716
  Serious: Yes (Other)
  Sender: MALLINCKRODT
  Company Number: US-MALLINCKRODT-MNK202502223

PATIENT
  Age: 43 Year
  Sex: Female
  Weight: 84 kg

DRUGS (29)
  1. CORTICOTROPIN [Suspect]
     Active Substance: CORTICOTROPIN
     Indication: Ankylosing spondylitis
     Route: 058
     Dates: start: 20230327
  2. CORTICOTROPIN [Suspect]
     Active Substance: CORTICOTROPIN
     Indication: Rheumatoid arthritis
  3. DOXEPIN [Concomitant]
     Active Substance: DOXEPIN
  4. DULOXETINE [Concomitant]
     Active Substance: DULOXETINE
  5. OXCARBAZEPINE [Concomitant]
     Active Substance: OXCARBAZEPINE
  6. ROPINIROLE [Concomitant]
     Active Substance: ROPINIROLE
  7. SYMBICORT [Concomitant]
     Active Substance: BUDESONIDE\FORMOTEROL FUMARATE DIHYDRATE
  8. VENTOLIN HFA [Concomitant]
     Active Substance: ALBUTEROL SULFATE
  9. VITAMIN D2 [Concomitant]
     Active Substance: ERGOCALCIFEROL
  10. TIZANIDINE [Concomitant]
     Active Substance: TIZANIDINE
  11. VITAMIN B12 [Concomitant]
     Active Substance: CYANOCOBALAMIN
  12. TUMS [Concomitant]
     Active Substance: CALCIUM CARBONATE
  13. SENNA LEAF [Concomitant]
     Active Substance: SENNA LEAF
  14. REFRESH TEARS [Concomitant]
     Active Substance: CARBOXYMETHYLCELLULOSE SODIUM
  15. BIFIDOBACTERIUM ANIMALIS LACTIS [Concomitant]
     Active Substance: BIFIDOBACTERIUM ANIMALIS LACTIS
  16. MAGNESIUM [Concomitant]
     Active Substance: MAGNESIUM
  17. FERROUS SULFATE [Concomitant]
     Active Substance: FERROUS SULFATE
  18. DIPHENHYDRAMINE [Concomitant]
     Active Substance: DIPHENHYDRAMINE
  19. CLARITHROMYCIN [Concomitant]
     Active Substance: CLARITHROMYCIN
  20. TALTZ [Concomitant]
     Active Substance: IXEKIZUMAB
     Dates: start: 20250211
  21. ZOLPIDEM [Concomitant]
     Active Substance: ZOLPIDEM TARTRATE
  22. GABAPENTIN [Concomitant]
     Active Substance: GABAPENTIN
  23. DEXLANSOPRAZOLE [Concomitant]
     Active Substance: DEXLANSOPRAZOLE
  24. FOLIC ACID [Concomitant]
     Active Substance: FOLIC ACID
  25. METOPROLOL SUCCINATE [Concomitant]
     Active Substance: METOPROLOL SUCCINATE
  26. FAMOTIDINE [Concomitant]
     Active Substance: FAMOTIDINE
  27. MOVANTIK [Concomitant]
     Active Substance: NALOXEGOL OXALATE
  28. BUSPIRONE [Concomitant]
     Active Substance: BUSPIRONE HYDROCHLORIDE
  29. ACETAMINOPHEN\BUTALBITAL\CAFFEINE [Concomitant]
     Active Substance: ACETAMINOPHEN\BUTALBITAL\CAFFEINE

REACTIONS (3)
  - Neuropathy peripheral [Unknown]
  - Swelling [Not Recovered/Not Resolved]
  - Influenza [Unknown]
